FAERS Safety Report 10185662 (Version 1)
Quarter: 2014Q2

REPORT INFORMATION
  Report Type: Spontaneous
  Country: US (occurrence: None)
  Receive Date: 20140520
  Receipt Date: 20140520
  Transmission Date: 20141212
  Serious: No
  Sender: FDA-Public Use
  Company Number: None

PATIENT
  Age: 61 Year
  Sex: Female

DRUGS (1)
  1. CAPECITABINE [Suspect]
     Indication: ANAL CANCER
     Route: 048
     Dates: start: 20140422, end: 20140516

REACTIONS (3)
  - Drug interaction [None]
  - Unevaluable event [None]
  - Product substitution issue [None]
